FAERS Safety Report 15203990 (Version 1)
Quarter: 2018Q3

REPORT INFORMATION
  Report Type: Spontaneous
  Country: FR (occurrence: FR)
  Receive Date: 20180726
  Receipt Date: 20180726
  Transmission Date: 20181010
  Serious: Yes (Death)
  Sender: FDA-Public Use
  Company Number: FR-TEVA-2018-FR-930563

PATIENT
  Age: 67 Year
  Sex: Male

DRUGS (14)
  1. LEVOFLOXACINE ACTAVIS [Suspect]
     Active Substance: LEVOFLOXACIN
     Indication: INFECTION
     Dosage: 1 DOSAGE FORMS DAILY;
     Route: 042
     Dates: start: 20180531, end: 20180613
  2. METHOTREXATE. [Suspect]
     Active Substance: METHOTREXATE
     Indication: B-CELL LYMPHOMA
     Route: 042
     Dates: start: 20180528, end: 20180528
  3. CYTARABINE. [Suspect]
     Active Substance: CYTARABINE
     Indication: B-CELL LYMPHOMA
     Route: 042
     Dates: start: 20180528, end: 20180528
  4. VINCRISTINE (SULFATE DE) [Suspect]
     Active Substance: VINCRISTINE SULFATE
     Indication: B-CELL LYMPHOMA
     Route: 042
     Dates: start: 20180518, end: 20180518
  5. EUPANTOL [Concomitant]
     Active Substance: PANTOPRAZOLE SODIUM
     Route: 065
  6. VANCOMYCINE SANDOZ 125 MG, POUDRE POUR SOLUTION POUR PERFUSION [Suspect]
     Active Substance: VANCOMYCIN HYDROCHLORIDE
     Indication: INFECTION
     Dosage: 15 MILLIGRAM DAILY;
     Route: 042
     Dates: start: 20180528, end: 20180611
  7. CYCLOPHOSPHAMIDE. [Suspect]
     Active Substance: CYCLOPHOSPHAMIDE
     Indication: B-CELL LYMPHOMA
     Route: 042
     Dates: start: 20180518, end: 20180518
  8. RITUXIMAB ((MAMMIFERE/HAMSTER/CELLULES CHO)) [Suspect]
     Active Substance: RITUXIMAB
     Indication: B-CELL LYMPHOMA
     Dates: start: 20180518, end: 20180518
  9. HUMALOG [Concomitant]
     Active Substance: INSULIN LISPRO
     Route: 065
  10. INNOHEP [Concomitant]
     Active Substance: TINZAPARIN SODIUM
     Route: 065
  11. DOXORUBICINE [Suspect]
     Active Substance: DOXORUBICIN
     Indication: B-CELL LYMPHOMA
     Route: 042
     Dates: start: 20180518, end: 20180518
  12. LEVETIRACETAM HOSPIRA 100 MG/ML, SOLUTION ? DILUER POUR PERFUSION [Suspect]
     Active Substance: LEVETIRACETAM
     Indication: SEIZURE
     Dosage: 1000 MILLIGRAM DAILY;
     Route: 042
     Dates: start: 20180524
  13. ISOPHANE INSULIN [Suspect]
     Active Substance: INSULIN NOS
     Indication: DIABETES MELLITUS
     Dosage: 40 IU (INTERNATIONAL UNIT) DAILY;
     Route: 058
     Dates: start: 20180524
  14. CEFAZOLINE MYLAN 2 G, POUDRE POUR SOLUTION INJECTABLE (IM?IV) [Suspect]
     Active Substance: CEFAZOLIN SODIUM
     Indication: INFECTION
     Dosage: 3 GRAM DAILY;
     Route: 042
     Dates: start: 20180531, end: 20180613

REACTIONS (3)
  - Non-Hodgkin^s lymphoma [None]
  - Jaundice cholestatic [Fatal]
  - B-cell lymphoma [None]

NARRATIVE: CASE EVENT DATE: 20180606
